FAERS Safety Report 15046272 (Version 2)
Quarter: 2018Q2

REPORT INFORMATION
  Report Type: Spontaneous
  Country: DE (occurrence: DE)
  Receive Date: 20180621
  Receipt Date: 20180629
  Transmission Date: 20180711
  Serious: Yes (Hospitalization, Other)
  Sender: FDA-Public Use
  Company Number: DE-TEVA-2018-DE-910919

PATIENT
  Sex: Male

DRUGS (27)
  1. SULFAMETHOXAZOLE AND TRIMETHOPRIM [Concomitant]
     Active Substance: SULFAMETHOXAZOLE\TRIMETHOPRIM
     Indication: PROPHYLAXIS
     Dosage: 960 MG, 2 TIMES/WK
     Route: 048
     Dates: start: 201505
  2. VINCRISTINE [Suspect]
     Active Substance: VINCRISTINE
     Indication: B-CELL LYMPHOMA
     Dosage: UNK, QD
     Route: 042
     Dates: start: 20150710
  3. RITUXIMAB. [Suspect]
     Active Substance: RITUXIMAB
     Indication: B-CELL LYMPHOMA
     Dosage: UNK, QD
     Route: 042
     Dates: start: 20150617
  4. RITUXIMAB. [Suspect]
     Active Substance: RITUXIMAB
     Route: 042
     Dates: start: 20150709, end: 20150709
  5. DOXORUBICINE [Suspect]
     Active Substance: DOXORUBICIN
     Indication: B-CELL LYMPHOMA
     Dosage: UNK, QD
     Route: 042
     Dates: start: 20150618
  6. PEGFILGRASTIM [Suspect]
     Active Substance: PEGFILGRASTIM
     Dates: start: 20150712, end: 20150712
  7. AMLODIPINE [Concomitant]
     Active Substance: AMLODIPINE BESYLATE
     Indication: AORTIC VALVE INCOMPETENCE
     Dosage: 5 MILLIGRAM DAILY; 5 MG, QD
     Route: 048
  8. CALCIUM FOLINATE [Suspect]
     Active Substance: LEUCOVORIN CALCIUM
     Route: 048
     Dates: start: 20150620, end: 20150620
  9. METAMIZOL NATRIUM [Concomitant]
     Indication: PYREXIA
  10. VINCRISTINE [Suspect]
     Active Substance: VINCRISTINE
     Route: 065
     Dates: start: 20150618
  11. PREDNISOLONE. [Suspect]
     Active Substance: PREDNISOLONE
     Route: 048
     Dates: start: 20150617, end: 20150622
  12. DOXORUBICINE [Suspect]
     Active Substance: DOXORUBICIN
     Dosage: UNK, QD
     Route: 042
     Dates: start: 20150710
  13. CYCLOPHOSPHAMIDE. [Suspect]
     Active Substance: CYCLOPHOSPHAMIDE
     Dates: start: 20150710
  14. FOLIC ACID. [Concomitant]
     Active Substance: FOLIC ACID
     Indication: PROPHYLAXIS
     Dosage: 5 MG, Q2WK
     Route: 048
     Dates: start: 201505
  15. POLYETHYLENE GLYCOL [Concomitant]
     Active Substance: POLYETHYLENE GLYCOLS
     Indication: CONSTIPATION
     Dosage: 1 BAG 1-0-0 FOR 3 DAYS
     Route: 048
     Dates: start: 20150701, end: 20150703
  16. PEGFILGRASTIM [Suspect]
     Active Substance: PEGFILGRASTIM
     Indication: B-CELL LYMPHOMA
     Dosage: 6 MILLIGRAM DAILY; 6 MG, QD
     Route: 058
     Dates: start: 20150621, end: 20150621
  17. METAMIZOL NATRIUM [Concomitant]
     Indication: PAIN
     Dosage: 1 G, AS NECESSARY, FOR 2 DAYS
     Route: 042
     Dates: start: 20150623, end: 20150624
  18. SULFAMETHOXAZOLE AND TRIMETHOPRIM [Concomitant]
     Active Substance: SULFAMETHOXAZOLE\TRIMETHOPRIM
     Dosage: 96 MG, 2 TIMES/WK
     Route: 048
     Dates: start: 201505
  19. COLECALCIFEROL [Concomitant]
     Active Substance: CHOLECALCIFEROL
     Indication: VITAMIN D DEFICIENCY
     Dosage: 20000 IU, QWK
     Route: 048
     Dates: start: 201505
  20. PREDNISOLONE. [Suspect]
     Active Substance: PREDNISOLONE
     Indication: B-CELL LYMPHOMA
     Dosage: UNK, QD
     Route: 048
     Dates: start: 20150709, end: 20150713
  21. RITUXIMAB. [Suspect]
     Active Substance: RITUXIMAB
     Dosage: UNK, QD
     Route: 042
     Dates: start: 20150915
  22. TAMSULOSIN [Concomitant]
     Active Substance: TAMSULOSIN
     Indication: BENIGN PROSTATIC HYPERPLASIA
     Dosage: 4 MILLIGRAM DAILY; 4 MG, QD
     Route: 048
  23. BISACODYL. [Concomitant]
     Active Substance: BISACODYL
     Indication: CONSTIPATION
     Dosage: 20 GTT DAILY; 20 GTT, QD
     Route: 048
     Dates: start: 20150701, end: 20150702
  24. RAMIPRIL. [Concomitant]
     Active Substance: RAMIPRIL
     Indication: HYPERTENSION
     Dosage: 10 MILLIGRAM DAILY; 5 MG, BID
     Route: 048
  25. CALCIUM FOLINATE [Suspect]
     Active Substance: LEUCOVORIN CALCIUM
     Indication: B-CELL LYMPHOMA
     Dosage: 5 MILLIGRAM DAILY; 5 MG, QD (FOR 2 WEEKS)
     Route: 048
     Dates: start: 201505, end: 201505
  26. CYCLOPHOSPHAMIDE. [Suspect]
     Active Substance: CYCLOPHOSPHAMIDE
     Indication: B-CELL LYMPHOMA
     Dosage: UNK, QD
     Route: 042
     Dates: start: 20150618
  27. PEGFILGRASTIM [Suspect]
     Active Substance: PEGFILGRASTIM
     Dosage: 6 MILLIGRAM DAILY; 6 MG, QD
     Route: 058
     Dates: start: 20150711, end: 20150711

REACTIONS (4)
  - Urosepsis [Recovered/Resolved]
  - Urinary tract infection [Recovered/Resolved]
  - Urinary tract infection [Recovered/Resolved]
  - Urinary tract infection [Unknown]

NARRATIVE: CASE EVENT DATE: 20150623
